FAERS Safety Report 8256979-3 (Version None)
Quarter: 2012Q2

REPORT INFORMATION
  Report Type: 
  Country: None (occurrence: None)
  Receive Date: 20120403
  Receipt Date: 20120330
  Transmission Date: 20120825
  Serious: Yes (Death, Hospitalization)
  Sender: FDA-Public Use
  Company Number: US-GLAXOSMITHKLINE-A0909696A

PATIENT
  Age: 39 Year
  Sex: Female
  Weight: 120 kg

DRUGS (4)
  1. AVANDIA [Suspect]
     Indication: TYPE 2 DIABETES MELLITUS
     Dosage: 8MG PER DAY
     Route: 048
     Dates: start: 20030527
  2. SYMBICORT [Concomitant]
  3. LISINOPRIL AND HYDROCHLOROTHIAZIDE [Concomitant]
  4. AVANDAMET [Suspect]
     Indication: DIABETES MELLITUS
     Route: 048
     Dates: start: 20070710, end: 20100409

REACTIONS (4)
  - MYOCARDIAL INFARCTION [None]
  - CARDIAC FAILURE CONGESTIVE [None]
  - POST PROCEDURAL HAEMORRHAGE [None]
  - PULMONARY EMBOLISM [None]
